FAERS Safety Report 9239366 (Version 1)
Quarter: 2013Q2

REPORT INFORMATION
  Report Type: Spontaneous
  Country: US (occurrence: US)
  Receive Date: 20130418
  Receipt Date: 20130418
  Transmission Date: 20140414
  Serious: Yes (Other)
  Sender: FDA-Public Use
  Company Number: CHPA2013US006134

PATIENT
  Age: 70 Year
  Sex: Female

DRUGS (4)
  1. THERAFLU COLD AND COUGH [Suspect]
     Indication: LYMPHADENOPATHY
     Dosage: 1 DF, Q6H PRN
     Route: 048
  2. THERAFLU COLD AND COUGH [Suspect]
     Indication: INFLUENZA
  3. BUFFERIN STRENGTH UNKNOWN [Suspect]
     Indication: MIGRAINE
     Dosage: 2 DF, QD (IN THE AM)
  4. DILTIAZEM [Suspect]
     Indication: HYPERTENSION
     Dosage: UNK, UNK

REACTIONS (1)
  - Breast cancer [Unknown]
